FAERS Safety Report 22942977 (Version 2)
Quarter: 2023Q4

REPORT INFORMATION
  Report Type: Spontaneous
  Country: US (occurrence: US)
  Receive Date: 20230914
  Receipt Date: 20231209
  Transmission Date: 20240110
  Serious: Yes (Other)
  Sender: FDA-Public Use
  Company Number: US-JNJFOC-20230909830

PATIENT
  Sex: Female

DRUGS (13)
  1. TYLENOL REGULAR STRENGTH [Suspect]
     Active Substance: ACETAMINOPHEN
     Indication: Illness
     Route: 064
     Dates: start: 201302, end: 201310
  2. TYLENOL REGULAR STRENGTH [Suspect]
     Active Substance: ACETAMINOPHEN
     Indication: Migraine
  3. ACETAMINOPHEN [Suspect]
     Active Substance: ACETAMINOPHEN
     Indication: Illness
     Route: 064
     Dates: start: 201301, end: 201310
  4. ACETAMINOPHEN [Suspect]
     Active Substance: ACETAMINOPHEN
     Indication: Migraine
  5. ACETAMINOPHEN [Suspect]
     Active Substance: ACETAMINOPHEN
     Indication: Illness
     Route: 064
     Dates: start: 201301, end: 201310
  6. ACETAMINOPHEN [Suspect]
     Active Substance: ACETAMINOPHEN
     Indication: Migraine
  7. MENOPUR [Concomitant]
     Active Substance: FOLLITROPIN\LUTEINIZING HORMONE
     Indication: Unevaluable event
  8. FOLLISTIM [Concomitant]
     Active Substance: FOLLITROPIN
     Indication: Unevaluable event
     Route: 065
     Dates: start: 201212, end: 201302
  9. MEDROL [Concomitant]
     Active Substance: METHYLPREDNISOLONE
     Indication: Unevaluable event
     Route: 065
     Dates: start: 201212, end: 201302
  10. OVIDREL [Concomitant]
     Active Substance: CHORIOGONADOTROPIN ALFA
     Indication: Unevaluable event
     Route: 065
     Dates: start: 201212, end: 201302
  11. GANIRELIX [Concomitant]
     Active Substance: GANIRELIX
     Indication: Unevaluable event
     Route: 065
     Dates: start: 201212, end: 201302
  12. VIVELLE [Concomitant]
     Active Substance: ESTRADIOL
     Indication: Unevaluable event
     Route: 065
     Dates: start: 201212, end: 201302
  13. DOXYCYCLINE [Concomitant]
     Active Substance: DOXYCYCLINE
     Indication: Unevaluable event
     Route: 065
     Dates: end: 201302

REACTIONS (3)
  - Autism spectrum disorder [Unknown]
  - Foetal exposure during pregnancy [Unknown]
  - Attention deficit hyperactivity disorder [Unknown]

NARRATIVE: CASE EVENT DATE: 20130101
